FAERS Safety Report 24235526 (Version 2)
Quarter: 2025Q1

REPORT INFORMATION
  Report Type: Spontaneous
  Country: CA (occurrence: CA)
  Receive Date: 20240821
  Receipt Date: 20250124
  Transmission Date: 20250409
  Serious: Yes (Hospitalization, Other)
  Sender: PFIZER
  Company Number: CA-PFIZER INC-PV202400108550

PATIENT
  Age: 66 Year
  Sex: Female

DRUGS (2)
  1. IBRANCE [Suspect]
     Active Substance: PALBOCICLIB
     Indication: Breast cancer metastatic
     Route: 048
     Dates: start: 20190729
  2. LETROZOLE [Concomitant]
     Active Substance: LETROZOLE

REACTIONS (6)
  - Cerebrovascular accident [Recovering/Resolving]
  - Post procedural complication [Recovering/Resolving]
  - Renal disorder [Recovering/Resolving]
  - Dyspnoea [Unknown]
  - Hypokinesia [Unknown]
  - Off label use [Unknown]

NARRATIVE: CASE EVENT DATE: 20230101
